FAERS Safety Report 17454759 (Version 2)
Quarter: 2020Q2

REPORT INFORMATION
  Report Type: Spontaneous
  Country: US (occurrence: US)
  Receive Date: 20200225
  Receipt Date: 20200428
  Transmission Date: 20200713
  Serious: No
  Sender: FDA-Public Use
  Company Number: US-BRISTOL-MYERS SQUIBB COMPANY-BMS-2020-015618

PATIENT
  Sex: Male

DRUGS (1)
  1. ORENCIA [Suspect]
     Active Substance: ABATACEPT
     Indication: ILL-DEFINED DISORDER
     Dosage: 125 MILLIGRAM, QWK
     Route: 058
     Dates: start: 201810

REACTIONS (2)
  - Intentional product use issue [Unknown]
  - Drug ineffective [Unknown]
